FAERS Safety Report 13436948 (Version 1)
Quarter: 2017Q2

REPORT INFORMATION
  Report Type: Spontaneous
  Country: US (occurrence: US)
  Receive Date: 20170412
  Receipt Date: 20170412
  Transmission Date: 20170830
  Serious: No
  Sender: FDA-Public Use
  Company Number: US-SA-2016SA098133

PATIENT

DRUGS (1)
  1. ALLEGRA ALLERGY [Suspect]
     Active Substance: FEXOFENADINE HYDROCHLORIDE
     Indication: MULTIPLE ALLERGIES
     Route: 048

REACTIONS (7)
  - Menstruation delayed [Unknown]
  - Somnolence [Unknown]
  - Unevaluable event [Unknown]
  - Menstrual disorder [Unknown]
  - Back pain [Unknown]
  - Dysmenorrhoea [Unknown]
  - Headache [Unknown]
